FAERS Safety Report 7980553-7 (Version None)
Quarter: 2011Q4

REPORT INFORMATION
  Report Type: 
  Country: None (occurrence: None)
  Receive Date: 20111214
  Receipt Date: 20111207
  Transmission Date: 20120403
  Serious: Yes (Other)
  Sender: FDA-Public Use
  Company Number: AU-UCBSA-029946

PATIENT
  Age: 28 Year
  Sex: Female
  Weight: 60 kg

DRUGS (11)
  1. KEPPRA [Suspect]
     Route: 048
     Dates: start: 20110315, end: 20110301
  2. CLOBAZAM [Suspect]
     Indication: EPILEPSY
     Route: 048
  3. KEPPRA [Suspect]
     Indication: EPILEPSY
     Dosage: PLAN TO TAPER AND STOP OVER NEXT 4 WEEKS
     Route: 048
     Dates: start: 20110101
  4. PHENYTOIN [Suspect]
     Dosage: ORAL LOADING  + 300 MG
     Route: 048
     Dates: start: 20110921
  5. KEPPRA [Suspect]
     Route: 048
     Dates: start: 20110301, end: 20110101
  6. KEPPRA [Suspect]
     Route: 048
     Dates: start: 20110220, end: 20110307
  7. CLONAZEPAM [Concomitant]
     Route: 048
     Dates: start: 20110101
  8. KEPPRA [Suspect]
     Route: 048
     Dates: start: 20110101, end: 20110101
  9. PHENYTOIN [Suspect]
     Indication: EPILEPSY
     Route: 048
     Dates: end: 20110220
  10. PHENYTOIN [Suspect]
     Route: 048
     Dates: start: 20110101, end: 20110301
  11. CLONAZEPAM [Concomitant]
     Indication: EPILEPSY
     Route: 048
     Dates: start: 20110901, end: 20111010

REACTIONS (5)
  - CONVULSION [None]
  - PREMATURE DELIVERY [None]
  - DRUG INEFFECTIVE [None]
  - CAESAREAN SECTION [None]
  - PREGNANCY [None]
